FAERS Safety Report 21632409 (Version 1)
Quarter: 2022Q4

REPORT INFORMATION
  Report Type: Spontaneous
  Country: US (occurrence: US)
  Receive Date: 20221123
  Receipt Date: 20221123
  Transmission Date: 20230113
  Serious: Yes (Hospitalization, Other)
  Sender: FDA-Public Use
  Company Number: US-Hikma Pharmaceuticals USA Inc.-US-H14001-22-02961

PATIENT
  Age: 38 Year
  Sex: Female
  Weight: 130.2 kg

DRUGS (19)
  1. CARBOPLATIN [Suspect]
     Active Substance: CARBOPLATIN
     Indication: Osteosarcoma metastatic
     Dosage: UNKNOWN
     Route: 065
     Dates: start: 20220726
  2. CISPLATIN [Suspect]
     Active Substance: CISPLATIN
     Indication: Osteosarcoma metastatic
     Dosage: UNKNOWN
     Route: 065
     Dates: start: 20220221
  3. CISPLATIN [Suspect]
     Active Substance: CISPLATIN
     Dosage: UNKNOWN
     Route: 065
     Dates: start: 20220314, end: 20220726
  4. DOXORUBICIN [Suspect]
     Active Substance: DOXORUBICIN
     Indication: Osteosarcoma metastatic
     Dosage: UNKNOWN
     Route: 065
     Dates: start: 20220221
  5. DOXORUBICIN [Suspect]
     Active Substance: DOXORUBICIN
     Dosage: UNKNOWN
     Route: 065
     Dates: start: 20220314
  6. DOXORUBICIN [Suspect]
     Active Substance: DOXORUBICIN
     Dosage: UNKNOWN
     Route: 065
     Dates: start: 20220726
  7. ETOPOSIDE [Suspect]
     Active Substance: ETOPOSIDE
     Indication: Osteosarcoma metastatic
     Route: 065
     Dates: start: 20220922
  8. IFOSFAMIDE [Suspect]
     Active Substance: IFOSFAMIDE
     Indication: Osteosarcoma metastatic
     Dosage: 3600 MG (1500 MG/M2) AND MESNA 3600 MG IN 0.9% NS, 1158 ML INFUSION; COMPLETED THREE OF SIX DOSES; S
     Route: 041
     Dates: start: 20220922
  9. IFOSFAMIDE [Suspect]
     Active Substance: IFOSFAMIDE
     Dosage: NEW BAG AT 48.3 ML/HR RATE
     Route: 041
     Dates: start: 20220923
  10. IFOSFAMIDE [Suspect]
     Active Substance: IFOSFAMIDE
     Dosage: NEW BAG AT 48.3 ML/HR RATE
     Route: 041
     Dates: start: 20220924
  11. IFOSFAMIDE [Suspect]
     Active Substance: IFOSFAMIDE
     Dosage: STOPPED INFUSION DUE TO CHANGE IN MENTAL STATUS
     Route: 041
     Dates: start: 20220925
  12. MESNA [Suspect]
     Active Substance: MESNA
     Indication: Osteosarcoma metastatic
     Dosage: IFOSFAMIDE 3600 MG (1500 MG/M2) AND MESNA 3600 MG IN 0.9% NS, 1158 ML INFUSION; COMPLETED THREE OF S
     Route: 041
     Dates: start: 20220922
  13. DEXTROSE\WATER [Suspect]
     Active Substance: DEXTROSE\WATER
     Indication: Osteosarcoma metastatic
     Route: 041
     Dates: start: 20220922, end: 20220927
  14. POTASSIUM CHLORIDE [Suspect]
     Active Substance: POTASSIUM CHLORIDE
     Indication: Osteosarcoma metastatic
     Dosage: 20 MEQ/L
     Route: 041
     Dates: start: 20220922, end: 20220927
  15. SODIUM BICARBONATE [Suspect]
     Active Substance: SODIUM BICARBONATE
     Indication: Osteosarcoma metastatic
     Dosage: 100 MEQ/L - 150 ML/HR
     Route: 041
     Dates: start: 20220922, end: 20220927
  16. NEULASTA [Suspect]
     Active Substance: PEGFILGRASTIM
     Indication: Osteosarcoma metastatic
     Dosage: 6 MG REQUESTED AT CSC APPROX. 10/1 OUTPATIENT
     Route: 065
  17. DEXAMETHASONE [Concomitant]
     Active Substance: DEXAMETHASONE
     Indication: Premedication
     Route: 065
  18. THIAMINE [Concomitant]
     Active Substance: THIAMINE
     Indication: Premedication
     Route: 065
  19. ZOFRAN [Concomitant]
     Active Substance: ONDANSETRON HYDROCHLORIDE
     Indication: Premedication
     Route: 065

REACTIONS (17)
  - Neurotoxicity [Unknown]
  - Bradycardia [Unknown]
  - Gastrooesophageal reflux disease [Unknown]
  - Acute kidney injury [Unknown]
  - Mucosal inflammation [Unknown]
  - Nausea [Unknown]
  - Pancytopenia [Unknown]
  - Condition aggravated [Unknown]
  - Renal disorder [Unknown]
  - Mental status changes [Unknown]
  - Tremor [Unknown]
  - Lethargy [Unknown]
  - Somnolence [Unknown]
  - Confusional state [Unknown]
  - Disorientation [Unknown]
  - Pulmonary mass [Unknown]
  - Mass [Unknown]

NARRATIVE: CASE EVENT DATE: 20220201
